FAERS Safety Report 19425874 (Version 1)
Quarter: 2021Q2

REPORT INFORMATION
  Report Type: Report from Study
  Country: BR (occurrence: BR)
  Receive Date: 20210616
  Receipt Date: 20210616
  Transmission Date: 20210717
  Serious: Yes (Other)
  Sender: FDA-Public Use
  Company Number: NVSC2021BR133129

PATIENT
  Age: 65 Year
  Sex: Male

DRUGS (1)
  1. GALVUS MET [Suspect]
     Active Substance: METFORMIN HYDROCHLORIDE\VILDAGLIPTIN
     Indication: PRODUCT USED FOR UNKNOWN INDICATION
     Dosage: 1 DF
     Route: 065
     Dates: start: 2012

REACTIONS (10)
  - Cerebrovascular accident [Recovered/Resolved]
  - Visual impairment [Recovering/Resolving]
  - Nervousness [Unknown]
  - Illness [Unknown]
  - Malaise [Recovering/Resolving]
  - Blood pressure abnormal [Recovering/Resolving]
  - Cerebrovascular accident [Recovered/Resolved]
  - Hypertension [Recovering/Resolving]
  - Hyperhidrosis [Recovering/Resolving]
  - Anger [Recovering/Resolving]

NARRATIVE: CASE EVENT DATE: 202012
